FAERS Safety Report 9847728 (Version 7)
Quarter: 2014Q3

REPORT INFORMATION
  Report Type: Report from Study
  Country: AU (occurrence: AU)
  Receive Date: 20140128
  Receipt Date: 20140701
  Transmission Date: 20150326
  Serious: Yes (Hospitalization)
  Sender: FDA-Public Use
  Company Number: AU-BIOGENIDEC-2013BI113911

PATIENT
  Age: 35 Year
  Sex: Female

DRUGS (1)
  1. TECFIDERA [Suspect]
     Active Substance: DIMETHYL FUMARATE
     Indication: MULTIPLE SCLEROSIS
     Dates: start: 20131119, end: 201405

REACTIONS (8)
  - Multiple sclerosis [Unknown]
  - Flushing [Unknown]
  - Gastroenteritis viral [Unknown]
  - Feeling hot [Unknown]
  - Wound infection [Unknown]
  - Hypoaesthesia [Not Recovered/Not Resolved]
  - Asthma [Unknown]
  - Fatigue [Unknown]

NARRATIVE: CASE EVENT DATE: 20131119
